FAERS Safety Report 16012155 (Version 1)
Quarter: 2019Q1

REPORT INFORMATION
  Report Type: Spontaneous
  Country: US (occurrence: US)
  Receive Date: 20190227
  Receipt Date: 20190227
  Transmission Date: 20190418
  Serious: No
  Sender: FDA-Public Use
  Company Number: US-PFIZER INC-2019085590

PATIENT
  Age: 52 Year
  Sex: Female

DRUGS (12)
  1. LUNESTA [Suspect]
     Active Substance: ESZOPICLONE
     Dosage: UNK
  2. TOPAMAX [Suspect]
     Active Substance: TOPIRAMATE
     Dosage: UNK
  3. RELPAX [Suspect]
     Active Substance: ELETRIPTAN HYDROBROMIDE
     Dosage: UNK
  4. IMITREX [Suspect]
     Active Substance: SUMATRIPTAN SUCCINATE
     Dosage: UNK
  5. AXERT [Suspect]
     Active Substance: ALMOTRIPTAN MALATE
     Dosage: UNK
  6. OTEZLA [Suspect]
     Active Substance: APREMILAST
     Dosage: UNK
  7. DURICEF [Suspect]
     Active Substance: CEFADROXIL
     Dosage: UNK
  8. ORACEA [Suspect]
     Active Substance: DOXYCYCLINE
     Dosage: UNK
  9. MAXALT [Suspect]
     Active Substance: RIZATRIPTAN BENZOATE
     Dosage: UNK
  10. FLEXERIL [CEFIXIME] [Suspect]
     Active Substance: CEFIXIME
     Dosage: UNK
  11. SONATA [Suspect]
     Active Substance: ZALEPLON
     Dosage: UNK
  12. METHOTREXATE SODIUM. [Suspect]
     Active Substance: METHOTREXATE SODIUM
     Dosage: UNK

REACTIONS (1)
  - Drug hypersensitivity [Unknown]
